FAERS Safety Report 12957460 (Version 2)
Quarter: 2016Q4

REPORT INFORMATION
  Report Type: Spontaneous
  Country: US (occurrence: US)
  Receive Date: 20161118
  Receipt Date: 20161123
  Transmission Date: 20170207
  Serious: Yes (Disabling, Other)
  Sender: FDA-Public Use
  Company Number: US-TEVA-713309USA

PATIENT
  Sex: Male

DRUGS (4)
  1. VYVANSE [Concomitant]
     Active Substance: LISDEXAMFETAMINE DIMESYLATE
  2. DEXEDRINE SPANSULE [Concomitant]
     Active Substance: DEXTROAMPHETAMINE SULFATE
  3. AMPHETAMINE W/DEXTROAMPHETAMINE [Suspect]
     Active Substance: AMPHETAMINE SULFATE\DEXTROAMPHETAMINE
     Indication: ATTENTION DEFICIT/HYPERACTIVITY DISORDER
     Route: 065
  4. CLONAZEPAM. [Concomitant]
     Active Substance: CLONAZEPAM

REACTIONS (16)
  - Sleep disorder [Unknown]
  - Anxiety [Unknown]
  - Delusional perception [Unknown]
  - Impaired self-care [Unknown]
  - Activities of daily living impaired [Unknown]
  - Drug ineffective [Unknown]
  - Mania [Unknown]
  - Bipolar disorder [Unknown]
  - Antisocial behaviour [Unknown]
  - Disability [Unknown]
  - Insomnia [Unknown]
  - Product substitution issue [Unknown]
  - Fatigue [Unknown]
  - Feeling abnormal [Unknown]
  - Psychotic disorder [Unknown]
  - Depression [Unknown]

NARRATIVE: CASE EVENT DATE: 200409
